FAERS Safety Report 25244608 (Version 1)
Quarter: 2025Q2

REPORT INFORMATION
  Report Type: Other
  Country: GB (occurrence: GB)
  Receive Date: 20250428
  Receipt Date: 20250428
  Transmission Date: 20250716
  Serious: Yes (Other)
  Sender: STRIDES
  Company Number: None

PATIENT
  Age: 22 Month
  Sex: Female

DRUGS (2)
  1. IBUPROFEN [Suspect]
     Active Substance: IBUPROFEN
     Indication: Product used for unknown indication
     Route: 065
     Dates: start: 20221213
  2. CALPOL [Suspect]
     Active Substance: ACETAMINOPHEN
     Indication: Product used for unknown indication
     Route: 065
     Dates: start: 20221213

REACTIONS (4)
  - Sepsis [Unknown]
  - Pneumonia [Unknown]
  - Beta haemolytic streptococcal infection [Unknown]
  - Viral infection [Unknown]

NARRATIVE: CASE EVENT DATE: 20221213
